FAERS Safety Report 8613647-3 (Version None)
Quarter: 2012Q3

REPORT INFORMATION
  Report Type: 
  Country: None (occurrence: None)
  Receive Date: 20120823
  Receipt Date: 20120809
  Transmission Date: 20120928
  Serious: Yes (Hospitalization, Disabling, Other)
  Sender: FDA-Public Use
  Company Number: US-MSD-1203USA01073

PATIENT

DRUGS (5)
  1. ALENDRONATE SODIUM [Suspect]
     Indication: OSTEOPOROSIS
     Dosage: 70 MG, UNK
     Route: 048
     Dates: start: 20080804
  2. CALCIUM (UNSPECIFIED) (+) VITAMIN D (UNSPECIFIED) [Concomitant]
     Dosage: 630 MG, BID
     Dates: start: 19970101
  3. FOSAMAX [Suspect]
     Indication: OSTEOPOROSIS
     Dosage: 10 MG, UNK
     Route: 048
     Dates: start: 20000419, end: 20010411
  4. FOSAMAX [Suspect]
     Dosage: 70 MG, UNK
     Route: 048
     Dates: start: 20011211, end: 20080110
  5. ALLEGRA [Concomitant]
     Dosage: UNK
     Dates: start: 20050801

REACTIONS (33)
  - BALANCE DISORDER [None]
  - NAUSEA [None]
  - HYPERTENSION [None]
  - PACKED RED BLOOD CELL TRANSFUSION [None]
  - INFECTION [None]
  - HYPERLIPIDAEMIA [None]
  - ARTERIOSCLEROSIS CORONARY ARTERY [None]
  - TONSILLAR DISORDER [None]
  - BACK PAIN [None]
  - RHINITIS [None]
  - ANAEMIA [None]
  - AORTIC ARTERIOSCLEROSIS [None]
  - OSTEOARTHRITIS [None]
  - GASTROOESOPHAGEAL REFLUX DISEASE [None]
  - LIMB ASYMMETRY [None]
  - PARANASAL CYST [None]
  - FEMUR FRACTURE [None]
  - FALL [None]
  - OSTEOPENIA [None]
  - HAEMORRHOIDS [None]
  - DEVICE FAILURE [None]
  - SKIN CANCER [None]
  - COLON ADENOMA [None]
  - CERUMEN IMPACTION [None]
  - DEAFNESS [None]
  - ADVERSE DRUG REACTION [None]
  - DIVERTICULUM [None]
  - CATARACT [None]
  - FIBROCYSTIC BREAST DISEASE [None]
  - CONSTIPATION [None]
  - LOW TURNOVER OSTEOPATHY [None]
  - VITAMIN D DEFICIENCY [None]
  - VERTIGO POSITIONAL [None]
